FAERS Safety Report 25179321 (Version 1)
Quarter: 2025Q2

REPORT INFORMATION
  Report Type: Spontaneous
  Country: US (occurrence: None)
  Receive Date: 20250409
  Receipt Date: 20250409
  Transmission Date: 20250716
  Serious: Yes (Other)
  Sender: FDA-CTU
  Company Number: None

PATIENT
  Age: 55 Year
  Sex: Female
  Weight: 89.1 kg

DRUGS (2)
  1. CIPROFLOXACIN HYDROCHLORIDE [Suspect]
     Active Substance: CIPROFLOXACIN HYDROCHLORIDE
     Indication: Pseudomonas infection
     Dosage: OTHER QUANTITY : 1 TABLET(S);?FREQUENCY : TWICE A DAY;?
     Route: 048
     Dates: start: 20250327, end: 20250328
  2. HYDROCORTISONE [Concomitant]
     Active Substance: HYDROCORTISONE

REACTIONS (16)
  - Pain in extremity [None]
  - Insomnia [None]
  - Muscle twitching [None]
  - Musculoskeletal discomfort [None]
  - Musculoskeletal discomfort [None]
  - Neck pain [None]
  - Arthralgia [None]
  - Joint swelling [None]
  - Arthralgia [None]
  - Tendonitis [None]
  - Eye irritation [None]
  - Tremor [None]
  - Nervousness [None]
  - Anxiety [None]
  - Arrhythmia [None]
  - Joint stiffness [None]

NARRATIVE: CASE EVENT DATE: 20250327
